FAERS Safety Report 9277478 (Version 1)
Quarter: 2013Q2

REPORT INFORMATION
  Report Type: Spontaneous
  Country: US (occurrence: None)
  Receive Date: 20130503
  Receipt Date: 20130503
  Transmission Date: 20140414
  Serious: Yes (Disabling)
  Sender: FDA-Public Use
  Company Number: None

PATIENT
  Age: 70 Year
  Sex: Male
  Weight: 92.99 kg

DRUGS (2)
  1. CIPROFLAXIN [Suspect]
     Indication: PROPHYLAXIS
     Dates: start: 20120910, end: 20121001
  2. CIPROFLAXIN [Suspect]
     Indication: CYSTITIS
     Dates: start: 20120910, end: 20121001

REACTIONS (2)
  - Gait disturbance [None]
  - Tendon pain [None]
